FAERS Safety Report 19877756 (Version 2)
Quarter: 2021Q4

REPORT INFORMATION
  Report Type: Report from Study
  Country: US (occurrence: US)
  Receive Date: 20210923
  Receipt Date: 20211020
  Transmission Date: 20220303
  Serious: Yes (Hospitalization)
  Sender: FDA-Public Use
  Company Number: US-TAKEDA-2021TUS053095

PATIENT
  Sex: Male
  Weight: 90.7 kg

DRUGS (15)
  1. HUMAN IMMUNOGLOBULIN G\HYALURONIDASE RECOMBINANT HUMAN [Suspect]
     Active Substance: HUMAN IMMUNOGLOBULIN G\HYALURONIDASE RECOMBINANT HUMAN
     Indication: Immunodeficiency common variable
     Dosage: 50 GRAM, Q2WEEKS
     Route: 058
     Dates: start: 20160331
  2. ACETAMINOPHEN [Concomitant]
     Active Substance: ACETAMINOPHEN
  3. DIPHENHYDRAMINE [Concomitant]
     Active Substance: DIPHENHYDRAMINE
  4. SODIUM CHLORIDE [Concomitant]
     Active Substance: SODIUM CHLORIDE
  5. EPINEPHRINE [Concomitant]
     Active Substance: EPINEPHRINE
  6. Lmx [Concomitant]
  7. ELIQUIS [Concomitant]
     Active Substance: APIXABAN
  8. FAMOTIDINE [Concomitant]
     Active Substance: FAMOTIDINE
  9. PANTOPRAZOLE [Concomitant]
     Active Substance: PANTOPRAZOLE
  10. METOPROLOL [Concomitant]
     Active Substance: METOPROLOL
  11. EPLERENONE [Concomitant]
     Active Substance: EPLERENONE
  12. KINERET [Concomitant]
     Active Substance: ANAKINRA
  13. ALBUMIN HUMAN [Concomitant]
     Active Substance: ALBUMIN HUMAN
  14. FUROSEMIDE [Concomitant]
     Active Substance: FUROSEMIDE
  15. SIMVASTATIN [Concomitant]
     Active Substance: SIMVASTATIN

REACTIONS (4)
  - Blood potassium decreased [Unknown]
  - Weight decreased [Unknown]
  - Fluid retention [Unknown]
  - Weight fluctuation [Unknown]
